FAERS Safety Report 12140744 (Version 1)
Quarter: 2016Q1

REPORT INFORMATION
  Report Type: Spontaneous
  Country: US (occurrence: US)
  Receive Date: 20160303
  Receipt Date: 20160303
  Transmission Date: 20160526
  Serious: No
  Sender: FDA-Public Use
  Company Number: US-PERRIGO-15US009356

PATIENT
  Age: 60 Year
  Sex: Female
  Weight: 113.38 kg

DRUGS (1)
  1. KETOCONAZOLE RX 2% 4L9 [Suspect]
     Active Substance: KETOCONAZOLE
     Indication: PSORIASIS
     Dosage: SMALL AMOUNT, SINGLE
     Route: 061
     Dates: start: 20150905, end: 20150905

REACTIONS (2)
  - Hair colour changes [Not Recovered/Not Resolved]
  - Off label use [Unknown]

NARRATIVE: CASE EVENT DATE: 20150905
